FAERS Safety Report 24388087 (Version 7)
Quarter: 2025Q1

REPORT INFORMATION
  Report Type: Report from Study
  Country: IE (occurrence: IE)
  Receive Date: 20241002
  Receipt Date: 20250219
  Transmission Date: 20250409
  Serious: Yes (Other)
  Sender: TAKEDA
  Company Number: IE-TAKEDA-2024TUS095718

PATIENT
  Age: 66 Year
  Sex: Female

DRUGS (2)
  1. HUMAN IMMUNOGLOBULIN G\HYALURONIDASE RECOMBINANT HUMAN [Suspect]
     Active Substance: HUMAN IMMUNOGLOBULIN G\HYALURONIDASE (HUMAN RECOMBINANT)
     Indication: Hypercholesterolaemia
     Dosage: 20 GRAM, Q4WEEKS
     Dates: start: 20240531
  2. HUMAN IMMUNOGLOBULIN G\HYALURONIDASE RECOMBINANT HUMAN [Suspect]
     Active Substance: HUMAN IMMUNOGLOBULIN G\HYALURONIDASE (HUMAN RECOMBINANT)
     Indication: Secondary immunodeficiency

REACTIONS (9)
  - Pneumothorax [Unknown]
  - Lower respiratory tract infection [Not Recovered/Not Resolved]
  - COVID-19 [Unknown]
  - Product use in unapproved indication [Unknown]
  - Device infusion issue [Unknown]
  - Inappropriate schedule of product administration [Recovering/Resolving]
  - Chest discomfort [Not Recovered/Not Resolved]
  - Diarrhoea [Unknown]
  - Vomiting [Unknown]

NARRATIVE: CASE EVENT DATE: 20240531
